FAERS Safety Report 9702855 (Version 1)
Quarter: 2013Q4

REPORT INFORMATION
  Report Type: Spontaneous
  Country: US (occurrence: None)
  Receive Date: 20131120
  Receipt Date: 20131120
  Transmission Date: 20140711
  Serious: Yes (Other)
  Sender: FDA-Public Use
  Company Number: 2013AP009659

PATIENT
  Sex: Female

DRUGS (2)
  1. ALENDRONATE SODIUM [Suspect]
     Indication: OSTEOPOROSIS
     Dates: start: 2005, end: 2011
  2. IBANDRONATE SODIUM [Suspect]
     Indication: OSTEOPOROSIS
     Dates: start: 2005, end: 2011

REACTIONS (7)
  - Femur fracture [None]
  - Hip fracture [None]
  - Bone disorder [None]
  - Pain [None]
  - Mental impairment [None]
  - Multiple injuries [None]
  - Emotional distress [None]
